FAERS Safety Report 20613013 (Version 1)
Quarter: 2022Q1

REPORT INFORMATION
  Report Type: Spontaneous
  Country: JP (occurrence: JP)
  Receive Date: 20220318
  Receipt Date: 20220318
  Transmission Date: 20220423
  Serious: No
  Sender: FDA-Public Use
  Company Number: JP-MSD-M2022-05137

PATIENT
  Age: 55 Year
  Sex: Female

DRUGS (5)
  1. MOLNUPIRAVIR [Suspect]
     Active Substance: MOLNUPIRAVIR
     Indication: COVID-19 treatment
     Dosage: 800 MILLIGRAM, BID
     Route: 048
     Dates: start: 20220208, end: 20220212
  2. CALONAL [Suspect]
     Active Substance: ACETAMINOPHEN
     Indication: Pyrexia
     Dosage: UNK, PRN
     Route: 048
     Dates: start: 20220208, end: 20220212
  3. CALONAL [Suspect]
     Active Substance: ACETAMINOPHEN
     Indication: Analgesic therapy
  4. ALLOID G [Suspect]
     Active Substance: SODIUM ALGINATE
     Indication: Gastritis
     Dosage: UNK
     Route: 048
     Dates: start: 20220208, end: 20220212
  5. REBAMIPIDE [Suspect]
     Active Substance: REBAMIPIDE
     Indication: Gastritis
     Dosage: UNK
     Route: 048
     Dates: start: 20220208, end: 20220212

REACTIONS (3)
  - Sensation of foreign body [Unknown]
  - Oropharyngeal pain [Recovered/Resolved]
  - Product use complaint [Unknown]

NARRATIVE: CASE EVENT DATE: 20220208
